FAERS Safety Report 6910975-4 (Version None)
Quarter: 2010Q3

REPORT INFORMATION
  Report Type: 
  Country: None (occurrence: None)
  Receive Date: 20100806
  Receipt Date: 20100729
  Transmission Date: 20110219
  Serious: Yes (Other)
  Sender: FDA-Public Use
  Company Number: A0865339A

PATIENT
  Sex: Male
  Weight: 95 kg

DRUGS (5)
  1. MALARONE [Suspect]
     Indication: MALARIA PROPHYLAXIS
     Route: 065
     Dates: start: 20100222, end: 20100311
  2. ALTACE [Concomitant]
     Dosage: 10MG PER DAY
     Route: 065
  3. EZETROL [Concomitant]
     Dosage: 10MG PER DAY
     Route: 065
  4. OMEPRAZOLE [Concomitant]
     Dosage: 20MG TWICE PER DAY
     Route: 065
  5. ASPIRIN [Concomitant]
     Dosage: 81MG PER DAY
     Route: 065

REACTIONS (4)
  - ASPARTATE AMINOTRANSFERASE INCREASED [None]
  - HEPATIC NEOPLASM [None]
  - HEPATIC NEOPLASM MALIGNANT [None]
  - NAUSEA [None]
